FAERS Safety Report 9316379 (Version 2)
Quarter: 2013Q2

REPORT INFORMATION
  Report Type: Spontaneous
  Country: CO (occurrence: CO)
  Receive Date: 20130530
  Receipt Date: 20130604
  Transmission Date: 20140414
  Serious: Yes (Death, Hospitalization)
  Sender: FDA-Public Use
  Company Number: CO-GENZYME-CLOF-1002661

PATIENT
  Age: 18 Year
  Sex: Male

DRUGS (4)
  1. EVOLTRA [Suspect]
     Indication: ACUTE LYMPHOCYTIC LEUKAEMIA
     Dosage: 40 MG/M2/ DOSE BODY SURFACE X 5 DOSES, QD
     Route: 065
     Dates: start: 20130201, end: 20130205
  2. CYCLOPHOSPHAMIDE [Concomitant]
     Indication: PRODUCT USED FOR UNKNOWN INDICATION
     Dosage: 440 MG/M2X DOSIS, UNK
     Route: 065
     Dates: start: 20130201, end: 20130205
  3. ETOPOSIDE [Concomitant]
     Indication: PRODUCT USED FOR UNKNOWN INDICATION
     Dosage: 100 MG/M2X DOSIS, UNK
     Route: 065
     Dates: start: 20130201, end: 20130205
  4. DEXAMETHASONE [Concomitant]
     Indication: PRODUCT USED FOR UNKNOWN INDICATION
     Dosage: 2 MG/M2X DOSIS, UNK
     Route: 065
     Dates: start: 20130201, end: 20130205

REACTIONS (2)
  - Pneumonitis [Fatal]
  - Viral haemorrhagic cystitis [Recovered/Resolved]
